FAERS Safety Report 6308148-1 (Version None)
Quarter: 2009Q3

REPORT INFORMATION
  Report Type: 
  Country: None (occurrence: None)
  Receive Date: 20090813
  Receipt Date: 20090812
  Transmission Date: 20100115
  Serious: Yes (Other)
  Sender: FDA-Public Use
  Company Number: NL-TEVA-203073ISR

PATIENT
  Age: 72 Year
  Sex: Male

DRUGS (1)
  1. PREDNISOLONE [Suspect]

REACTIONS (1)
  - MYCOBACTERIAL INFECTION [None]
